FAERS Safety Report 5335937-2 (Version None)
Quarter: 2007Q2

REPORT INFORMATION
  Report Type: 
  Country: None (occurrence: None)
  Receive Date: 20070301
  Receipt Date: 20061115
  Transmission Date: 20071010
  Serious: Yes (Hospitalization)
  Sender: FDA-Public Use
  Company Number: US200611002988

PATIENT
  Age: 27 Year
  Sex: Female

DRUGS (2)
  1. SYMBYAX [Suspect]
     Indication: BIPOLAR DISORDER
     Dosage: D/F
     Dates: start: 20060101
  2. METAMFETAMINE HYDROCHLORIDE [Concomitant]

REACTIONS (1)
  - INTENTIONAL OVERDOSE [None]
